FAERS Safety Report 19399288 (Version 1)
Quarter: 2021Q2

REPORT INFORMATION
  Report Type: Spontaneous
  Country: NL (occurrence: NL)
  Receive Date: 20210610
  Receipt Date: 20210610
  Transmission Date: 20210717
  Serious: Yes (Life-Threatening, Disabling)
  Sender: FDA-Public Use
  Company Number: NL-ACCORD-227684

PATIENT
  Age: 31 Year
  Sex: Female
  Weight: 57 kg

DRUGS (3)
  1. FINGOLIMOD/FINGOLIMOD HYDROCHLORIDE [Suspect]
     Active Substance: FINGOLIMOD HYDROCHLORIDE
     Indication: MULTIPLE SCLEROSIS
     Dosage: FOR 2?3 MONTHS 1DD 0.5MG FOLLOWED BY 2 YEARS 3X / WEEK
     Dates: start: 2019, end: 20210322
  2. COLECALCIFEROL [Concomitant]
     Active Substance: CHOLECALCIFEROL
     Dosage: CAPSULE, 400 UNITS
  3. FINGOLIMOD/FINGOLIMOD HYDROCHLORIDE [Suspect]
     Active Substance: FINGOLIMOD HYDROCHLORIDE
     Indication: MULTIPLE SCLEROSIS
     Dosage: FOR 2?3 MONTHS 1DD 0.5MG FOLLOWED BY 2 YEARS 3X / WEEK
     Dates: start: 20181105, end: 2019

REACTIONS (1)
  - Precursor T-lymphoblastic lymphoma/leukaemia [Not Recovered/Not Resolved]

NARRATIVE: CASE EVENT DATE: 20210319
